FAERS Safety Report 21043517 (Version 1)
Quarter: 2022Q3

REPORT INFORMATION
  Report Type: Spontaneous
  Country: IN (occurrence: None)
  Receive Date: 20220702
  Receipt Date: 20220702
  Transmission Date: 20221027
  Serious: Yes (Hospitalization)
  Sender: FDA-Public Use
  Company Number: None

PATIENT
  Age: 22 Year
  Sex: Female

DRUGS (1)
  1. SALICYLIC ACID [Suspect]
     Active Substance: SALICYLIC ACID
     Indication: Skin discolouration
     Dosage: FREQUENCY : DAILY;?
     Route: 061
     Dates: start: 20220627, end: 20220627

REACTIONS (3)
  - Depression [None]
  - Application site burn [None]
  - Second degree chemical burn of skin [None]

NARRATIVE: CASE EVENT DATE: 20220627
